FAERS Safety Report 4991267-X (Version None)
Quarter: 2006Q2

REPORT INFORMATION
  Report Type: 
  Country: None (occurrence: None)
  Receive Date: 20060428
  Receipt Date: 20060413
  Transmission Date: 20061013
  Serious: Yes (Hospitalization, Other)
  Sender: FDA-Public Use
  Company Number: US200604002477

PATIENT
  Age: 85 Year
  Sex: Female

DRUGS (7)
  1. CYMBALTA [Suspect]
     Dosage: 60 MG
     Dates: start: 20050401
  2. XANAX /USA/ (ALPRAZOLAM) [Concomitant]
  3. PERCOCET-5 (ACETYLSALICYLIC ACID, OXYCODONE HYDROCHLORIDE, OXYCODONE T [Concomitant]
  4. AVAPRO [Concomitant]
  5. POTASSIUM CHLORIDE [Concomitant]
  6. LASIX [Concomitant]
  7. NEURONTIN [Concomitant]

REACTIONS (1)
  - HEPATITIS [None]
